FAERS Safety Report 9980809 (Version 1)
Quarter: 2014Q1

REPORT INFORMATION
  Report Type: Spontaneous
  Country: US (occurrence: US)
  Receive Date: 20140307
  Receipt Date: 20140307
  Transmission Date: 20141002
  Serious: No
  Sender: FDA-Public Use
  Company Number: US-009507513-1402USA012192

PATIENT
  Age: 6 Year
  Sex: Male

DRUGS (2)
  1. ASMANEX TWISTHALER [Suspect]
     Indication: ASTHMA
     Dosage: 1 DF (220MCG 1 STANDARD DOSE OF 30), QD
     Route: 055
     Dates: start: 20140213
  2. ALBUTEROL [Concomitant]
     Dosage: UNK, PRN

REACTIONS (3)
  - Wheezing [Recovered/Resolved]
  - Product quality issue [Recovered/Resolved]
  - Drug dose omission [Recovered/Resolved]
